FAERS Safety Report 7746254-5 (Version None)
Quarter: 2011Q3

REPORT INFORMATION
  Report Type: 
  Country: None (occurrence: None)
  Receive Date: 20110908
  Receipt Date: 20110825
  Transmission Date: 20111222
  Serious: Yes (Death, Life-Threatening, Other)
  Sender: FDA-Public Use
  Company Number: 2011SE48278

PATIENT
  Age: 58 Year
  Sex: Female

DRUGS (7)
  1. FOSCAVIR [Suspect]
     Indication: CYTOMEGALOVIRUS INFECTION
     Dosage: 150 MILLIGRAMS TWO TIMES A DAY
     Route: 042
     Dates: start: 20110808, end: 20110814
  2. FLUCONAZOLE [Concomitant]
  3. PREDNISOLONE [Concomitant]
  4. OMEPRAZOLE [Concomitant]
  5. REMINARON (GABEXATE MESILATE) [Concomitant]
  6. DORIBAX [Concomitant]
  7. BENAMBAX (PENTAMIDINE) [Concomitant]

REACTIONS (14)
  - PNEUMONIA CYTOMEGALOVIRAL [None]
  - ACUTE RESPIRATORY DISTRESS SYNDROME [None]
  - STEM CELL TRANSPLANT [None]
  - SMALL INTESTINAL HAEMORRHAGE [None]
  - PNEUMOCYSTIS JIROVECI PNEUMONIA [None]
  - RESPIRATORY ARREST [None]
  - ACUTE PULMONARY OEDEMA [None]
  - RENAL IMPAIRMENT [None]
  - HEPATIC FAILURE [None]
  - RESPIRATORY FAILURE [None]
  - CHOLESTASIS [None]
  - RENAL HAEMORRHAGE [None]
  - SHOCK [None]
  - MYELODYSPLASTIC SYNDROME [None]
